FAERS Safety Report 17029347 (Version 1)
Quarter: 2019Q4

REPORT INFORMATION
  Report Type: Spontaneous
  Country: US (occurrence: US)
  Receive Date: 20191114
  Receipt Date: 20191114
  Transmission Date: 20200122
  Serious: No
  Sender: FDA-Public Use
  Company Number: US-PAREXEL INTERNATIONAL-2019US008941

PATIENT
  Sex: Male

DRUGS (1)
  1. RHOFADE [Suspect]
     Active Substance: OXYMETAZOLINE HYDROCHLORIDE
     Indication: ERYTHEMA
     Dosage: UNK

REACTIONS (2)
  - Drug ineffective [Unknown]
  - Application site erythema [Unknown]
